FAERS Safety Report 20870502 (Version 1)
Quarter: 2022Q2

REPORT INFORMATION
  Report Type: Spontaneous
  Country: US (occurrence: US)
  Receive Date: 20220525
  Receipt Date: 20220525
  Transmission Date: 20220721
  Serious: No
  Sender: FDA-Public Use
  Company Number: US-GILEAD-2022-0582420

PATIENT

DRUGS (1)
  1. TRUVADA [Suspect]
     Active Substance: EMTRICITABINE\TENOFOVIR DISOPROXIL FUMARATE
     Indication: Product used for unknown indication
     Dosage: UNK
     Route: 048
     Dates: start: 2004, end: 2013

REACTIONS (5)
  - Protein total increased [Unknown]
  - Glomerular filtration rate decreased [Unknown]
  - Tooth loss [Unknown]
  - Bone density decreased [Unknown]
  - Blood creatinine increased [Unknown]
